FAERS Safety Report 12105024 (Version 1)
Quarter: 2016Q1

REPORT INFORMATION
  Report Type: Report from Study
  Country: GB (occurrence: GB)
  Receive Date: 20160223
  Receipt Date: 20160223
  Transmission Date: 20160526
  Serious: Yes (Hospitalization, Other)
  Sender: FDA-Public Use
  Company Number: GB-SHIRE-GB201602066

PATIENT
  Age: 19 Year
  Sex: Male

DRUGS (3)
  1. IDURSULFASE [Suspect]
     Active Substance: IDURSULFASE
     Indication: MUCOPOLYSACCHARIDOSIS II
     Dosage: 0.65 MG/KG (ALTERNATING WITH 0.76 MG/KG AND WITH UNSPEICFIED PREMEDICATION), 1X/WEEK
     Route: 041
     Dates: start: 20110714
  2. IDURSULFASE [Suspect]
     Active Substance: IDURSULFASE
     Dosage: 0.5 MG/KG, 1X/WEEK WITH UNSPECIFIED PREMEDICATION
     Route: 041
     Dates: start: 20040127
  3. IDURSULFASE [Suspect]
     Active Substance: IDURSULFASE
     Dosage: 0.5 MG/KG, 1X/WEEK
     Route: 041
     Dates: start: 20041123

REACTIONS (1)
  - Aortic disorder [Unknown]

NARRATIVE: CASE EVENT DATE: 20130108
